FAERS Safety Report 16554811 (Version 2)
Quarter: 2019Q3

REPORT INFORMATION
  Report Type: Report from Study
  Country: None (occurrence: JP)
  Receive Date: 20190710
  Receipt Date: 20190808
  Transmission Date: 20191004
  Serious: Yes (Hospitalization, Other)
  Sender: FDA-Public Use
  Company Number: JP-ABBVIE-19K-087-2847933-00

PATIENT
  Age: 55 Year
  Sex: Female
  Weight: 43 kg

DRUGS (6)
  1. HUMIRA [Suspect]
     Active Substance: ADALIMUMAB
     Route: 058
     Dates: start: 20180410, end: 20180424
  2. HUMIRA [Suspect]
     Active Substance: ADALIMUMAB
     Indication: UVEITIS
     Route: 058
     Dates: start: 20180403, end: 2018
  3. HUMIRA [Suspect]
     Active Substance: ADALIMUMAB
     Route: 058
     Dates: start: 20181019
  4. COLCHICINE. [Concomitant]
     Active Substance: COLCHICINE
     Indication: UVEITIS
     Route: 048
     Dates: end: 20180522
  5. CELECOXIB. [Concomitant]
     Active Substance: CELECOXIB
     Indication: SPONDYLITIS
     Route: 048
     Dates: start: 20181012
  6. HUMIRA [Suspect]
     Active Substance: ADALIMUMAB
     Route: 058
     Dates: start: 20180508, end: 20181009

REACTIONS (4)
  - Thyroiditis subacute [Recovered/Resolved]
  - Uveitis [Recovered/Resolved]
  - Uveitis [Recovering/Resolving]
  - Cataract [Not Recovered/Not Resolved]

NARRATIVE: CASE EVENT DATE: 20180509
